FAERS Safety Report 6313455-2 (Version None)
Quarter: 2009Q3

REPORT INFORMATION
  Report Type: 
  Country: None (occurrence: None)
  Receive Date: 20090818
  Receipt Date: 20090813
  Transmission Date: 20100115
  Serious: Yes (Death, Disabling, Other)
  Sender: FDA-Public Use
  Company Number: RU-BAYER-RU-2007-028545

PATIENT
  Age: 58 Year
  Sex: Male

DRUGS (8)
  1. CAMPATH [Suspect]
     Indication: MANTLE CELL LYMPHOMA
     Dosage: ESCALATION 3 MG AND 10 MG
     Route: 041
     Dates: start: 20060821, end: 20060101
  2. CAMPATH [Suspect]
     Dosage: ESCALATION 3 MG AND 10 MG AND 30 MG
     Route: 041
     Dates: start: 20060101, end: 20060101
  3. CAMPATH [Suspect]
     Dosage: UNIT DOSE: 30 MG
     Route: 041
     Dates: start: 20060101, end: 20061215
  4. COTRIM [Concomitant]
     Dosage: 960 MG/D, UNK
  5. VALACYCLOVIR HCL [Concomitant]
     Dosage: 500 MG/D, UNK
  6. CIPROFLOXACIN [Concomitant]
     Dosage: 1000 MG/D, UNK
  7. FLUCONAZOLE [Concomitant]
     Dosage: 150 MG/D, UNK
  8. LAMIVUDINE [Concomitant]
     Dosage: 150 MG/D, UNK

REACTIONS (2)
  - ASTHENIA [None]
  - RESPIRATORY TRACT INFECTION VIRAL [None]
